FAERS Safety Report 16206721 (Version 1)
Quarter: 2019Q2

REPORT INFORMATION
  Report Type: Spontaneous
  Country: US (occurrence: US)
  Receive Date: 20190416
  Receipt Date: 20190416
  Transmission Date: 20190711
  Serious: Yes (Disabling, Other)
  Sender: FDA-Public Use
  Company Number: None

PATIENT
  Sex: Female
  Weight: 116.12 kg

DRUGS (1)
  1. OMNIPAQUE [Suspect]
     Active Substance: IOHEXOL

REACTIONS (8)
  - Abdominal pain [None]
  - Swelling face [None]
  - Dysphagia [None]
  - Neck pain [None]
  - Swelling [None]
  - Contrast media reaction [None]
  - Headache [None]
  - Lymphadenopathy [None]
